FAERS Safety Report 6634158-0 (Version None)
Quarter: 2010Q1

REPORT INFORMATION
  Report Type: 
  Country: None (occurrence: None)
  Receive Date: 20100310
  Receipt Date: 20100223
  Transmission Date: 20100710
  Serious: Yes (Death, Other)
  Sender: FDA-Public Use
  Company Number: CERZ-1001127

PATIENT
  Age: 81 Year
  Sex: Female

DRUGS (1)
  1. CEREZYME [Suspect]
     Indication: GAUCHER'S DISEASE
     Dates: start: 19930101, end: 19970101

REACTIONS (4)
  - DISEASE PROGRESSION [None]
  - GAUCHER'S DISEASE [None]
  - NORMAL PRESSURE HYDROCEPHALUS [None]
  - PULMONARY HYPERTENSION [None]
